FAERS Safety Report 23880312 (Version 1)
Quarter: 2024Q2

REPORT INFORMATION
  Report Type: Spontaneous
  Country: US (occurrence: None)
  Receive Date: 20240521
  Receipt Date: 20240521
  Transmission Date: 20240716
  Serious: Yes (Disabling)
  Sender: FDA-Public Use
  Company Number: None

PATIENT
  Age: 71 Year
  Sex: Female
  Weight: 85.5 kg

DRUGS (14)
  1. AZITHROMYCIN [Suspect]
     Active Substance: AZITHROMYCIN
     Indication: Tonsillitis
     Dosage: 6 TABLETS DAILY ORAL
     Route: 048
     Dates: start: 20240102, end: 20240106
  2. ATORVASTATIN [Concomitant]
     Active Substance: ATORVASTATIN
  3. LISINOPRIL [Concomitant]
     Active Substance: LISINOPRIL
  4. AZELASTINE [Concomitant]
     Active Substance: AZELASTINE\AZELASTINE HYDROCHLORIDE
  5. FLUTICASONE [Concomitant]
     Active Substance: FLUTICASONE
  6. IMIPRAMINE [Concomitant]
     Active Substance: IMIPRAMINE
  7. PANTOPRAZOLE [Concomitant]
     Active Substance: PANTOPRAZOLE
  8. MONTELUKAST [Concomitant]
     Active Substance: MONTELUKAST SODIUM
  9. DOCUSATE SODIUM [Concomitant]
     Active Substance: DOCUSATE SODIUM
  10. KRILL OIL [Concomitant]
     Active Substance: DIETARY SUPPLEMENT\KRILL OIL
  11. LORATADINE [Concomitant]
     Active Substance: LORATADINE
  12. ONE-A-DAY NOS [Concomitant]
     Active Substance: MINERALS\VITAMINS
  13. FERROUS SULFATE [Concomitant]
     Active Substance: FERROUS SULFATE
  14. PROBIOTICS NOS [Concomitant]
     Active Substance: PROBIOTICS NOS

REACTIONS (1)
  - Tinnitus [None]

NARRATIVE: CASE EVENT DATE: 20240106
